FAERS Safety Report 7135122-8 (Version None)
Quarter: 2010Q4

REPORT INFORMATION
  Report Type: 
  Country: None (occurrence: None)
  Receive Date: 20101203
  Receipt Date: 20101129
  Transmission Date: 20110411
  Serious: Yes (Other)
  Sender: FDA-Public Use
  Company Number: US-PFIZER INC-2010116566

PATIENT
  Sex: Female
  Weight: 88.435 kg

DRUGS (10)
  1. AROMASIN [Suspect]
     Indication: BREAST CANCER
     Dosage: 25 MG, 1X/DAY
     Dates: start: 20100709, end: 20101116
  2. AROMASIN [Suspect]
     Indication: MASTECTOMY
  3. CALTRATE 600 + VITAMIN D [Suspect]
     Dosage: UNK
     Dates: start: 20100101
  4. LORAZEPAM [Concomitant]
     Dosage: 1 MG, 3X/DAY
  5. PROPRANOLOL [Concomitant]
     Dosage: 20 MG, 3X/DAY
  6. BENAZEPRIL [Concomitant]
     Dosage: 5 MG, UNK
  7. FISH OIL [Concomitant]
     Dosage: UNK
  8. VITAMIN E [Concomitant]
     Dosage: UNK
  9. CENTRUM SILVER [Concomitant]
     Dosage: UNK
  10. UREX [Concomitant]
     Dosage: UNK

REACTIONS (10)
  - ASTHENIA [None]
  - BLOOD PRESSURE FLUCTUATION [None]
  - CONSTIPATION [None]
  - DEPRESSION [None]
  - DIARRHOEA [None]
  - DRUG INEFFECTIVE [None]
  - FATIGUE [None]
  - FEELING HOT [None]
  - MIGRAINE [None]
  - WEIGHT INCREASED [None]
